FAERS Safety Report 7564004-2 (Version None)
Quarter: 2011Q2

REPORT INFORMATION
  Report Type: 
  Country: None (occurrence: None)
  Receive Date: 20110622
  Receipt Date: 20110615
  Transmission Date: 20111010
  Serious: Yes (Other)
  Sender: FDA-Public Use
  Company Number: US-ABBOTT-11P-163-0732219-00

PATIENT
  Sex: Female

DRUGS (5)
  1. HUMIRA [Suspect]
     Route: 058
     Dates: start: 20110526, end: 20110526
  2. PREDNISONE [Concomitant]
     Route: 048
  3. HUMIRA [Suspect]
     Indication: CROHN'S DISEASE
     Route: 058
     Dates: start: 20110512, end: 20110512
  4. PREDNISONE [Suspect]
     Indication: CROHN'S DISEASE
     Route: 048
     Dates: start: 20090101, end: 20110511
  5. HUMIRA [Suspect]
     Route: 058
     Dates: start: 20110609

REACTIONS (3)
  - DYSURIA [None]
  - BLADDER DILATATION [None]
  - BLADDER PAIN [None]
